FAERS Safety Report 8709769 (Version 3)
Quarter: 2013Q4

REPORT INFORMATION
  Report Type: Spontaneous
  Country: GB (occurrence: GB)
  Receive Date: 20120803
  Receipt Date: 20131031
  Transmission Date: 20140711
  Serious: Yes (Hospitalization)
  Sender: FDA-Public Use
  Company Number: GB-009507513-1208GBR000405

PATIENT
  Sex: 0

DRUGS (1)
  1. SINEMET 10MG/100MG TABLETS [Suspect]
     Dosage: UNK
     Route: 048

REACTIONS (2)
  - Gallbladder disorder [Recovering/Resolving]
  - Wrong technique in drug usage process [Unknown]
